FAERS Safety Report 7161718-3 (Version None)
Quarter: 2010Q4

REPORT INFORMATION
  Report Type: 
  Country: None (occurrence: None)
  Receive Date: 20101215
  Receipt Date: 20100524
  Transmission Date: 20110411
  Serious: No
  Sender: FDA-Public Use
  Company Number: US-ABBOTT-10P-163-0647773-00

PATIENT

DRUGS (2)
  1. NIMBEX [Suspect]
     Indication: NEUROMUSCULAR BLOCKADE
     Dates: start: 20100101
  2. NIMBEX [Suspect]
     Indication: ANAESTHESIA

REACTIONS (1)
  - DRUG INEFFECTIVE [None]
